FAERS Safety Report 6290954-3 (Version None)
Quarter: 2009Q3

REPORT INFORMATION
  Report Type: 
  Country: None (occurrence: None)
  Receive Date: 20090729
  Receipt Date: 20090729
  Transmission Date: 20100115
  Serious: Yes (Other)
  Sender: FDA-Public Use
  Company Number: None

PATIENT
  Age: 78 Year
  Sex: Male
  Weight: 58.9676 kg

DRUGS (1)
  1. LEVADOPA/CARBIDOP 25/250 MG INFO WITH CAREMARK [Suspect]
     Indication: PARKINSON'S DISEASE
     Dosage: 1 4 X'S A DAY
     Dates: start: 20090301, end: 20090330

REACTIONS (5)
  - ABNORMAL BEHAVIOUR [None]
  - DELIRIUM [None]
  - DRUG DISPENSING ERROR [None]
  - MENTAL DISORDER [None]
  - PRODUCT SUBSTITUTION ISSUE [None]
